FAERS Safety Report 5506232-3 (Version None)
Quarter: 2007Q4

REPORT INFORMATION
  Report Type: 
  Country: None (occurrence: None)
  Receive Date: 20071101
  Receipt Date: 20071022
  Transmission Date: 20080405
  Serious: Yes (Death)
  Sender: FDA-Public Use
  Company Number: 2007EN000107

PATIENT
  Sex: Male

DRUGS (1)
  1. ABELCET [Suspect]
     Indication: ASPERGILLOSIS
     Dosage: ;IV
     Route: 042
     Dates: start: 20070901, end: 20070901

REACTIONS (2)
  - CARDIAC DEATH [None]
  - HYPERKALAEMIA [None]
